FAERS Safety Report 7881943 (Version 2)
Quarter: 2013Q2

REPORT INFORMATION
  Report Type: Other
  Country: MX (occurrence: MX)
  Receive Date: 20110401
  Receipt Date: 20130602
  Transmission Date: 20140414
  Serious: No
  Sender: FDA-Public Use
  Company Number: PHHY2011MX22845

PATIENT
  Age: 62 Year
  Sex: Male

DRUGS (1)
  1. CO-DIOVAN [Suspect]
     Indication: HYPERTENSION
     Dosage: 1 DF, (160 MG VALS/ 25 MG HYDRO) DAILY
     Route: 048
     Dates: start: 201009

REACTIONS (1)
  - No adverse event [Unknown]
